FAERS Safety Report 9226555 (Version 1)
Quarter: 2013Q2

REPORT INFORMATION
  Report Type: Report from Study
  Country: US (occurrence: PL)
  Receive Date: 20130412
  Receipt Date: 20130412
  Transmission Date: 20140414
  Serious: Yes (Hospitalization)
  Sender: FDA-Public Use
  Company Number: US-BIOGENIDEC-2013BI018193

PATIENT
  Age: 40 Year
  Sex: Female
  Weight: 55 kg

DRUGS (21)
  1. BG00012 [Suspect]
     Indication: MULTIPLE SCLEROSIS
     Dates: start: 20101012
  2. COENZYME QID [Concomitant]
     Indication: MIGRAINE
     Route: 048
     Dates: start: 20130131
  3. VITAMIN B2 [Concomitant]
     Indication: ROUTINE HEALTH MAINTENANCE
     Route: 048
     Dates: start: 20130131
  4. TIMOLOL [Concomitant]
     Indication: MIGRAINE
     Route: 048
     Dates: start: 20130131
  5. PROPRANOLOL [Concomitant]
     Indication: MIGRAINE
     Route: 048
     Dates: start: 20130118
  6. ACZONE [Concomitant]
     Indication: PAIN
     Dates: start: 20120720
  7. METHSCOPOLAMINE BROMIDE [Concomitant]
     Indication: ANTIALLERGIC THERAPY
     Route: 048
     Dates: start: 20120414
  8. AMITIZA [Concomitant]
     Indication: CONSTIPATION
     Route: 048
     Dates: start: 20110620
  9. PROVIGIL [Concomitant]
     Indication: FATIGUE
     Route: 048
     Dates: start: 20110324
  10. MIRALAX [Concomitant]
     Indication: FAECALOMA
     Route: 048
     Dates: start: 20101108
  11. TRIFLEX OSTEOBIFLEX JOINT SHIELD [Concomitant]
     Indication: ROUTINE HEALTH MAINTENANCE
     Route: 048
     Dates: start: 20090611
  12. MULTIVITAMIN [Concomitant]
     Indication: ROUTINE HEALTH MAINTENANCE
     Route: 048
     Dates: start: 199801
  13. CALCIUM [Concomitant]
     Indication: ROUTINE HEALTH MAINTENANCE
     Route: 048
     Dates: start: 200001
  14. VITAMIN D [Concomitant]
     Indication: ROUTINE HEALTH MAINTENANCE
     Route: 048
     Dates: start: 200001
  15. ROZEREM [Concomitant]
     Indication: INSOMNIA
     Dates: start: 20100112
  16. PRONASE [Concomitant]
     Indication: MULTIPLE ALLERGIES
     Route: 055
     Dates: start: 20100112
  17. FISH OIL [Concomitant]
     Indication: ROUTINE HEALTH MAINTENANCE
     Route: 048
     Dates: start: 200905
  18. PROCHLORPERAZINE [Concomitant]
     Indication: NAUSEA
     Route: 048
     Dates: start: 20100104
  19. NABUMETONE [Concomitant]
     Indication: HEADACHE
     Route: 048
     Dates: start: 20100112
  20. MIGRANOL [Concomitant]
     Indication: HEADACHE
     Route: 055
     Dates: start: 20100112
  21. SUDAFED 12 HOURS [Concomitant]
     Indication: RHINITIS
     Route: 048
     Dates: start: 20120316

REACTIONS (1)
  - Migraine [Recovered/Resolved]
